FAERS Safety Report 25308792 (Version 2)
Quarter: 2025Q4

REPORT INFORMATION
  Report Type: Spontaneous
  Country: US (occurrence: US)
  Receive Date: 20250513
  Receipt Date: 20251221
  Transmission Date: 20260118
  Serious: No
  Sender: SANOFI AVENTIS
  Company Number: US-SA-2025SA134818

PATIENT
  Age: 12 Year
  Sex: Male

DRUGS (2)
  1. DUPIXENT [Suspect]
     Active Substance: DUPILUMAB
     Indication: Eosinophilic oesophagitis
     Dosage: 300 MG, QW
     Route: 058
     Dates: start: 202410
  2. OMEPRAZOLE [Concomitant]
     Active Substance: OMEPRAZOLE
     Dosage: UNK

REACTIONS (12)
  - Gastrointestinal disorder [Unknown]
  - Sinus disorder [Unknown]
  - Pharyngitis streptococcal [Unknown]
  - Influenza [Unknown]
  - COVID-19 [Unknown]
  - Parvovirus B19 infection [Unknown]
  - Vomiting [Unknown]
  - Nausea [Unknown]
  - Pyrexia [Unknown]
  - Diarrhoea [Unknown]
  - Eosinophilic oesophagitis [Unknown]
  - Rash [Unknown]

NARRATIVE: CASE EVENT DATE: 20250401
